FAERS Safety Report 22297140 (Version 1)
Quarter: 2023Q2

REPORT INFORMATION
  Report Type: Other
  Country: None (occurrence: CN)
  Receive Date: 20230509
  Receipt Date: 20230509
  Transmission Date: 20230721
  Serious: Yes (Death, Other)
  Sender: FDA-Public Use
  Company Number: CN-Appco Pharma LLC-2141255

PATIENT
  Age: 55 Year
  Sex: Female

DRUGS (3)
  1. DOXYCYCLINE [Suspect]
     Active Substance: DOXYCYCLINE
     Indication: Anti-infective therapy
     Route: 065
  2. MEROPENEM [Suspect]
     Active Substance: MEROPENEM
     Route: 065
  3. VORICONAZOLE [Suspect]
     Active Substance: VORICONAZOLE
     Route: 065

REACTIONS (1)
  - Drug ineffective [Fatal]
